FAERS Safety Report 11428352 (Version 1)
Quarter: 2015Q3

REPORT INFORMATION
  Report Type: Spontaneous
  Country: US (occurrence: US)
  Receive Date: 20150828
  Receipt Date: 20150828
  Transmission Date: 20151125
  Serious: No
  Sender: FDA-Public Use
  Company Number: US-ROCHE-1105887

PATIENT
  Sex: Male

DRUGS (2)
  1. PEGASYS [Suspect]
     Active Substance: PEGINTERFERON ALFA-2A
     Indication: CHRONIC HEPATITIS C
     Route: 058
     Dates: start: 20120309, end: 20120817
  2. RIBAVIRIN. [Suspect]
     Active Substance: RIBAVIRIN
     Indication: CHRONIC HEPATITIS C
     Route: 048
     Dates: start: 20120309, end: 20120819

REACTIONS (7)
  - Vomiting [Unknown]
  - Agitation [Unknown]
  - Nausea [Unknown]
  - Cold sweat [Unknown]
  - Feeling hot [Unknown]
  - Chest pain [Unknown]
  - Headache [Unknown]
